FAERS Safety Report 4788845-X (Version None)
Quarter: 2005Q4

REPORT INFORMATION
  Report Type: 
  Country: None (occurrence: None)
  Receive Date: 20051005
  Receipt Date: 20050926
  Transmission Date: 20060501
  Serious: Yes (Other)
  Sender: FDA-Public Use
  Company Number: ES-BRISTOL-MYERS SQUIBB COMPANY-13124649

PATIENT
  Age: 72 Year
  Sex: Male

DRUGS (2)
  1. CAPTOPRIL AND HYDROCHLOROTHIAZIDE [Suspect]
     Indication: HYPERTENSION
     Dosage: DOSAGE FORM = 50MG + 25MG; REDUCED TO 25MG/8H W/ SAME DIURETIC DOSE, FURTHER REDUCTION TO 12.5MG/8H
  2. CAPTOPRIL [Concomitant]
     Indication: HYPERTENSION
     Dosage: AT MIDDAY

REACTIONS (4)
  - BLOOD PRESSURE SYSTOLIC INCREASED [None]
  - HEADACHE [None]
  - LOSS OF CONSCIOUSNESS [None]
  - MYOCLONUS [None]
